FAERS Safety Report 11646880 (Version 1)
Quarter: 2015Q4

REPORT INFORMATION
  Report Type: Spontaneous
  Country: US (occurrence: US)
  Receive Date: 20151020
  Receipt Date: 20151020
  Transmission Date: 20160304
  Serious: No
  Sender: FDA-Public Use
  Company Number: US-ROCHE-1610954

PATIENT
  Sex: Female
  Weight: 59.93 kg

DRUGS (2)
  1. ESBRIET [Suspect]
     Active Substance: PIRFENIDONE
     Indication: IDIOPATHIC PULMONARY FIBROSIS
     Dosage: 3 CAPSULES
     Route: 048
     Dates: start: 20150429
  2. ESBRIET [Suspect]
     Active Substance: PIRFENIDONE
     Indication: MULTIPLE SCLEROSIS

REACTIONS (3)
  - Pruritus [Unknown]
  - Sunburn [Unknown]
  - Photosensitivity reaction [Unknown]
